FAERS Safety Report 13879641 (Version 1)
Quarter: 2017Q3

REPORT INFORMATION
  Report Type: Spontaneous
  Country: US (occurrence: US)
  Receive Date: 20170814
  Receipt Date: 20170814
  Transmission Date: 20171127
  Serious: Yes (Disabling)
  Sender: FDA-Public Use
  Company Number: None

PATIENT
  Sex: Female
  Weight: 60.75 kg

DRUGS (1)
  1. CIPROFLOXACIN. [Suspect]
     Active Substance: CIPROFLOXACIN
     Indication: URINARY TRACT INFECTION
     Dosage: ?          QUANTITY:14 TABLET(S);?
     Route: 048
     Dates: start: 20130923, end: 20131007

REACTIONS (11)
  - Plantar fasciitis [None]
  - Tendon pain [None]
  - Headache [None]
  - Joint stiffness [None]
  - Gait inability [None]
  - Fatigue [None]
  - Photopsia [None]
  - Visual impairment [None]
  - Palpitations [None]
  - Halo vision [None]
  - Migraine with aura [None]

NARRATIVE: CASE EVENT DATE: 20130823
